FAERS Safety Report 7132335-6 (Version None)
Quarter: 2010Q4

REPORT INFORMATION
  Report Type: 
  Country: None (occurrence: None)
  Receive Date: 20101130
  Receipt Date: 20101130
  Transmission Date: 20110411
  Serious: Yes (Other)
  Sender: FDA-Public Use
  Company Number: None

PATIENT
  Age: 30 Year
  Sex: Female
  Weight: 74.8435 kg

DRUGS (1)
  1. LEVAQUIN [Suspect]
     Indication: CYSTOSCOPY
     Dosage: 1 TABLET
     Dates: start: 20101129, end: 20101129

REACTIONS (2)
  - PRURITUS [None]
  - URTICARIA [None]
